FAERS Safety Report 15608040 (Version 1)
Quarter: 2018Q4

REPORT INFORMATION
  Report Type: Report from Study
  Country: GB (occurrence: GB)
  Receive Date: 20181112
  Receipt Date: 20181112
  Transmission Date: 20190205
  Serious: Yes (Other)
  Sender: FDA-Public Use
  Company Number: GB-JNJFOC-20181109482

PATIENT
  Sex: Female

DRUGS (2)
  1. STELARA [Suspect]
     Active Substance: USTEKINUMAB
     Indication: CROHN^S DISEASE
     Route: 058
     Dates: start: 20180911
  2. GLYCERYL TRINITRATE [Concomitant]
     Active Substance: NITROGLYCERIN
     Indication: ASTHMA
     Route: 055

REACTIONS (6)
  - Pain [Unknown]
  - Therapeutic response decreased [Unknown]
  - Headache [Unknown]
  - Neoplasm [Unknown]
  - Contusion [Unknown]
  - Dizziness [Unknown]

NARRATIVE: CASE EVENT DATE: 2018
